FAERS Safety Report 23338937 (Version 2)
Quarter: 2024Q1

REPORT INFORMATION
  Report Type: Spontaneous
  Country: SE (occurrence: SE)
  Receive Date: 20231226
  Receipt Date: 20240325
  Transmission Date: 20240409
  Serious: Yes (Other)
  Sender: FDA-Public Use
  Company Number: SE-BRISTOL-MYERS SQUIBB COMPANY-2023-186855

PATIENT
  Age: 51 Year
  Sex: Female

DRUGS (2)
  1. NIVOLUMAB [Suspect]
     Active Substance: NIVOLUMAB
     Indication: Colon cancer
     Dosage: DOSE : UNAVAILABLE;     FREQ : UNAVAILABLE
     Dates: end: 20230413
  2. IPILIMUMAB [Suspect]
     Active Substance: IPILIMUMAB
     Indication: Colon cancer
     Dates: end: 20230413

REACTIONS (3)
  - Pneumonia [Unknown]
  - Adrenal insufficiency [Unknown]
  - Hypophysitis [Unknown]

NARRATIVE: CASE EVENT DATE: 20230413
